FAERS Safety Report 9787927 (Version 1)
Quarter: 2013Q4

REPORT INFORMATION
  Report Type: Spontaneous
  Country: US (occurrence: None)
  Receive Date: 20131227
  Receipt Date: 20131227
  Transmission Date: 20140711
  Serious: Yes (Disabling)
  Sender: FDA-Public Use
  Company Number: None

PATIENT
  Age: 34 Year
  Sex: Male
  Weight: 63.5 kg

DRUGS (1)
  1. CIPRO [Suspect]
     Indication: PROSTATE INFECTION
     Dosage: 1 OR 2 DAYS
     Dates: start: 199704

REACTIONS (6)
  - Paraesthesia [None]
  - Paraesthesia [None]
  - Muscular weakness [None]
  - Muscle twitching [None]
  - Hypoaesthesia [None]
  - Hypoaesthesia [None]
